FAERS Safety Report 24682087 (Version 1)
Quarter: 2024Q4

REPORT INFORMATION
  Report Type: Spontaneous
  Country: DE (occurrence: DE)
  Receive Date: 20241130
  Receipt Date: 20241130
  Transmission Date: 20250114
  Serious: Yes (Other)
  Sender: GLAXOSMITHKLINE
  Company Number: DE-GSK-DE2024EME147201

PATIENT

DRUGS (1)
  1. DOSTARLIMAB [Suspect]
     Active Substance: DOSTARLIMAB
     Indication: Product used for unknown indication
     Dosage: 500 MG, Q3W

REACTIONS (2)
  - Polyneuropathy [Unknown]
  - Myalgia [Unknown]
